FAERS Safety Report 24297243 (Version 1)
Quarter: 2024Q3

REPORT INFORMATION
  Report Type: Spontaneous
  Country: GB (occurrence: GB)
  Receive Date: 20240909
  Receipt Date: 20240909
  Transmission Date: 20241016
  Serious: Yes (Other)
  Sender: AUROBINDO
  Company Number: GB-MHRA-MED-202408300017290670-NRMZL

PATIENT
  Age: 47 Year
  Sex: Female
  Weight: 80 kg

DRUGS (1)
  1. CITALOPRAM HYDROBROMIDE [Suspect]
     Active Substance: CITALOPRAM HYDROBROMIDE
     Indication: Anxiety
     Dosage: UNK, 20MG (REDUCED TO 10MG)
     Route: 065

REACTIONS (4)
  - Trigeminal neuralgia [Recovered/Resolved]
  - Fatigue [Not Recovered/Not Resolved]
  - Bruxism [Recovered/Resolved]
  - Restless legs syndrome [Recovered/Resolved]

NARRATIVE: CASE EVENT DATE: 20231101
